FAERS Safety Report 7597588-9 (Version None)
Quarter: 2011Q3

REPORT INFORMATION
  Report Type: 
  Country: None (occurrence: None)
  Receive Date: 20110708
  Receipt Date: 20110628
  Transmission Date: 20111222
  Serious: Yes (Hospitalization)
  Sender: FDA-Public Use
  Company Number: US-ROCHE-781785

PATIENT
  Sex: Female
  Weight: 49.9 kg

DRUGS (6)
  1. VYTORIN [Concomitant]
     Dates: start: 20010101
  2. DOCETAXEL [Suspect]
     Indication: NON-SMALL CELL LUNG CANCER
     Route: 042
     Dates: start: 20110223, end: 20110601
  3. CIPROFLOXACIN [Concomitant]
     Dates: start: 20110224
  4. BEVACIZUMAB [Suspect]
     Indication: NON-SMALL CELL LUNG CANCER
     Route: 042
     Dates: start: 20110223, end: 20110601
  5. BENAZEPRIL HYDROCHLORIDE [Concomitant]
     Dates: start: 20010101
  6. NATEGLINIDE [Concomitant]
     Dates: start: 20100501

REACTIONS (1)
  - FATIGUE [None]
